FAERS Safety Report 16377798 (Version 1)
Quarter: 2019Q2

REPORT INFORMATION
  Report Type: Spontaneous
  Country: IN (occurrence: IN)
  Receive Date: 20190531
  Receipt Date: 20190531
  Transmission Date: 20190711
  Serious: Yes (Hospitalization, Other)
  Sender: FDA-Public Use
  Company Number: IN-009507513-1905IND011882

PATIENT
  Age: 24 Year
  Sex: Female
  Weight: 50.8 kg

DRUGS (12)
  1. DELAMANID [Suspect]
     Active Substance: DELAMANID
     Indication: PULMONARY TUBERCULOSIS
     Dosage: 100 MILLIGRAM, BID
     Dates: start: 20190129
  2. BEDAQUILINE [Suspect]
     Active Substance: BEDAQUILINE
     Indication: PULMONARY TUBERCULOMA
     Dosage: 200 MILLIGRAM, TIW
     Dates: start: 20190129
  3. CLOFAZIMINE [Suspect]
     Active Substance: CLOFAZIMINE
     Indication: PULMONARY TUBERCULOSIS
     Dosage: 200 MILLIGRAM, QD
     Dates: start: 20190129
  4. LINEZOLID. [Suspect]
     Active Substance: LINEZOLID
     Indication: PULMONARY TUBERCULOSIS
     Dosage: 600 MILLIGRAM, QD
     Dates: start: 20190129
  5. METOCLOPRAMIDE. [Concomitant]
     Active Substance: METOCLOPRAMIDE
     Indication: VOMITING
     Dosage: UNK
     Dates: start: 20190129
  6. PYRAZINAMIDE. [Suspect]
     Active Substance: PYRAZINAMIDE
     Indication: PULMONARY TUBERCULOSIS
     Dosage: 750 MILLIGRAM, BID
     Dates: start: 20190129
  7. ONDANSETRON [Concomitant]
     Active Substance: ONDANSETRON
     Indication: VOMITING
     Dosage: UNK
     Route: 048
     Dates: start: 20190129
  8. DERIPHYLLIN [Concomitant]
     Active Substance: ETOFYLLINE\THEOPHYLLINE
     Indication: DYSPNOEA
     Dosage: UNK
     Dates: start: 20190129
  9. BEDAQUILINE [Suspect]
     Active Substance: BEDAQUILINE
     Dosage: FOR 6 MONTHS
     Dates: start: 2018
  10. IMIPENEM AND CILASTATIN [Suspect]
     Active Substance: CILASTATIN SODIUM\IMIPENEM
     Indication: PULMONARY TUBERCULOSIS
     Dosage: 1 GRAM, BID
     Dates: start: 20190208, end: 20190219
  11. OMEPRAZOLE. [Concomitant]
     Active Substance: OMEPRAZOLE
     Indication: GASTRITIS
     Dosage: UNK
     Dates: start: 20190129
  12. GLYCOPYRROLATE (+) INDACATEROL MALEATE [Concomitant]
     Indication: DYSPNOEA
     Dosage: UNK

REACTIONS (9)
  - White blood cell count decreased [Unknown]
  - Vomiting [Unknown]
  - Urine output decreased [Unknown]
  - Nausea [Unknown]
  - Pyrexia [Unknown]
  - Micturition frequency decreased [Unknown]
  - Headache [Unknown]
  - Haemoglobin decreased [Unknown]
  - Thrombosis [Unknown]

NARRATIVE: CASE EVENT DATE: 2019
